FAERS Safety Report 13689546 (Version 3)
Quarter: 2017Q3

REPORT INFORMATION
  Report Type: Report from Study
  Country: US (occurrence: US)
  Receive Date: 20170626
  Receipt Date: 20170705
  Transmission Date: 20171127
  Serious: Yes (Death, Hospitalization, Other)
  Sender: FDA-Public Use
  Company Number: US-GILEAD-2017-0280072

PATIENT
  Age: 77 Year
  Sex: Female

DRUGS (18)
  1. LEVOTHYROXINE. [Concomitant]
     Active Substance: LEVOTHYROXINE
  2. CYMBALTA [Concomitant]
     Active Substance: DULOXETINE HYDROCHLORIDE
  3. ROPINIROLE. [Concomitant]
     Active Substance: ROPINIROLE
  4. PROAIR HFA [Concomitant]
     Active Substance: ALBUTEROL SULFATE
  5. BUTRANS [Concomitant]
     Active Substance: BUPRENORPHINE
  6. UPTRAVI [Concomitant]
     Active Substance: SELEXIPAG
  7. TORSEMIDE. [Concomitant]
     Active Substance: TORSEMIDE
  8. DEXILANT [Concomitant]
     Active Substance: DEXLANSOPRAZOLE
  9. METOLAZONE. [Concomitant]
     Active Substance: METOLAZONE
  10. BUMETANIDE. [Concomitant]
     Active Substance: BUMETANIDE
  11. ALDACTONE [Concomitant]
     Active Substance: SPIRONOLACTONE
  12. FERROUS SULFATE. [Concomitant]
     Active Substance: FERROUS SULFATE
  13. AMBRISENTAN [Suspect]
     Active Substance: AMBRISENTAN
     Indication: PULMONARY HYPERTENSION
     Dosage: 5 MG, QD
     Route: 065
     Dates: start: 20100519
  14. AMBRISENTAN [Suspect]
     Active Substance: AMBRISENTAN
     Dosage: 10 MG, QD
     Route: 065
     Dates: start: 20170614, end: 20170626
  15. LOVASTATIN. [Concomitant]
     Active Substance: LOVASTATIN
  16. NORTRIPTYLINE [Concomitant]
     Active Substance: NORTRIPTYLINE
  17. ADCIRCA [Concomitant]
     Active Substance: TADALAFIL
  18. BUMEX [Concomitant]
     Active Substance: BUMETANIDE

REACTIONS (4)
  - Tricuspid valve disease [Not Recovered/Not Resolved]
  - Death [Fatal]
  - Pneumonia [Not Recovered/Not Resolved]
  - Fluid overload [Not Recovered/Not Resolved]

NARRATIVE: CASE EVENT DATE: 20170615
